FAERS Safety Report 15585292 (Version 3)
Quarter: 2018Q4

REPORT INFORMATION
  Report Type: Spontaneous
  Country: DE (occurrence: DE)
  Receive Date: 20181102
  Receipt Date: 20181102
  Transmission Date: 20190205
  Serious: Yes (Other)
  Sender: FDA-Public Use
  Company Number: PHHY2018DE121489

PATIENT
  Age: 17 Year
  Sex: Female

DRUGS (13)
  1. 5-FLUOROURACIL [Concomitant]
     Active Substance: FLUOROURACIL
     Indication: NASOPHARYNGEAL CANCER
     Dosage: UNK
     Route: 065
  2. CISPLATIN. [Suspect]
     Active Substance: CISPLATIN
     Indication: NASOPHARYNGEAL CANCER
     Dosage: UNK
     Route: 065
  3. CYCLOPHOSPHAMIDE. [Suspect]
     Active Substance: CYCLOPHOSPHAMIDE
     Indication: BONE MARROW CONDITIONING REGIMEN
     Dosage: UNK
     Route: 065
  4. ACYCLOVIR. [Concomitant]
     Active Substance: ACYCLOVIR
     Indication: ANTIVIRAL PROPHYLAXIS
     Dosage: 2400 MG, QD
     Route: 065
  5. TREOSULFAN [Suspect]
     Active Substance: TREOSULFAN
     Indication: BONE MARROW CONDITIONING REGIMEN
     Dosage: UNK
     Route: 065
  6. METRONIDAZOLE. [Concomitant]
     Active Substance: METRONIDAZOLE
     Indication: ANTIBIOTIC PROPHYLAXIS
     Dosage: 800 MG, QD (FOR 29 DAYS)
     Route: 065
  7. COTRIMOXAZOLE [Concomitant]
     Active Substance: SULFAMETHOXAZOLE\TRIMETHOPRIM
     Indication: ANTIBIOTIC PROPHYLAXIS
     Dosage: 160 MG, QD
     Route: 065
  8. CARBOPLATIN. [Concomitant]
     Active Substance: CARBOPLATIN
     Indication: NASOPHARYNGEAL CANCER
     Dosage: UNK
     Route: 065
  9. DOCETAXEL. [Concomitant]
     Active Substance: DOCETAXEL
     Indication: NASOPHARYNGEAL CANCER
     Dosage: UNK
     Route: 065
  10. PREDNISOLONE. [Suspect]
     Active Substance: PREDNISOLONE
     Indication: GRAFT VERSUS HOST DISEASE IN SKIN
     Dosage: 100 MG, QD
     Route: 065
  11. METHOTREXATE. [Suspect]
     Active Substance: METHOTREXATE
     Indication: GRAFT VERSUS HOST DISEASE IN SKIN
     Dosage: 15 MG, QD
     Route: 065
  12. CICLOSPORIN [Suspect]
     Active Substance: CYCLOSPORINE
     Indication: GRAFT VERSUS HOST DISEASE IN SKIN
     Dosage: 90 MG, QD
     Route: 065
  13. AMPHOTERICIN-B [Concomitant]
     Active Substance: AMPHOTERICIN B
     Indication: ANTIFUNGAL PROPHYLAXIS
     Dosage: 150 MG, QD
     Route: 065

REACTIONS (7)
  - Transaminases increased [Recovered/Resolved]
  - Tinnitus [Unknown]
  - Product use in unapproved indication [Unknown]
  - Hypertension [Unknown]
  - Nausea [Unknown]
  - Mucosal inflammation [Unknown]
  - Drug ineffective for unapproved indication [Unknown]
